FAERS Safety Report 7368795-5 (Version None)
Quarter: 2011Q1

REPORT INFORMATION
  Report Type: 
  Country: None (occurrence: None)
  Receive Date: 20110323
  Receipt Date: 20110314
  Transmission Date: 20110831
  Serious: Yes (Hospitalization)
  Sender: FDA-Public Use
  Company Number: CZ-MPIJNJ-2011-01084

PATIENT

DRUGS (9)
  1. VELCADE [Suspect]
     Indication: MULTIPLE MYELOMA
     Dosage: 2.31 MG, CYCLIC
     Route: 042
     Dates: start: 20100512, end: 20101019
  2. BONEFOS [Concomitant]
     Indication: OSTEOLYSIS
     Dosage: 1600 MG, QD
     Route: 048
     Dates: start: 20080201, end: 20101019
  3. ZOVIRAX                            /00587301/ [Concomitant]
     Indication: PROPHYLAXIS
     Dosage: 800 MG, BID
     Route: 048
     Dates: start: 20080201
  4. OMEPRAZOLE [Concomitant]
     Indication: PROPHYLAXIS
     Dosage: 20 MG, QD
     Route: 048
     Dates: start: 20080201
  5. CLEXANE [Concomitant]
     Indication: PROPHYLAXIS
     Dosage: 0.4 ML, QD
     Route: 058
     Dates: start: 20080201, end: 20101019
  6. HEPARIN [Concomitant]
     Indication: PROPHYLAXIS
     Route: 065
  7. CYCLOPHOSPHAMIDE [Concomitant]
     Dosage: 1400 MG, MONTHLY
     Route: 048
  8. CITALEC [Concomitant]
     Indication: DEPRESSION
     Dosage: 20 MG, QD
     Route: 048
     Dates: start: 20080201
  9. DEXAMETHASONE [Concomitant]
     Dosage: 160 MG, MONTHLY
     Route: 048

REACTIONS (2)
  - DISEASE PROGRESSION [None]
  - UROSEPSIS [None]
